FAERS Safety Report 12673802 (Version 1)
Quarter: 2016Q3

REPORT INFORMATION
  Report Type: Spontaneous
  Country: US (occurrence: US)
  Receive Date: 20160822
  Receipt Date: 20160822
  Transmission Date: 20161109
  Serious: Yes (Other)
  Sender: FDA-Public Use
  Company Number: US-ELI_LILLY_AND_COMPANY-US201608007861

PATIENT
  Sex: Female
  Weight: 74 kg

DRUGS (17)
  1. ZYPREXA [Suspect]
     Active Substance: OLANZAPINE
     Indication: PRODUCT USED FOR UNKNOWN INDICATION
     Dosage: 7.5 MG, QD
     Route: 048
     Dates: start: 20031008, end: 20050308
  2. ZYPREXA [Suspect]
     Active Substance: OLANZAPINE
     Dosage: 2.5 MG, OTHER
     Route: 048
     Dates: start: 20150308
  3. KLONOPIN [Suspect]
     Active Substance: CLONAZEPAM
     Indication: MENTAL DISORDER
     Dosage: UNK UNK, UNKNOWN
     Route: 065
     Dates: start: 2002, end: 20050308
  4. CALCIUM PLUS VITAMIN D [Concomitant]
     Active Substance: CALCIUM\VITAMIN D
     Indication: NUTRITIONAL SUPPLEMENTATION
     Dosage: 600 MG, QD
     Route: 065
  5. KAPSOVIT [Concomitant]
     Indication: NUTRITIONAL SUPPLEMENTATION
     Dosage: 1 DF, QD
     Route: 065
  6. CLOMIPRAMINE [Suspect]
     Active Substance: CLOMIPRAMINE
     Indication: MENTAL DISORDER
     Dosage: UNK, UNKNOWN
     Route: 065
     Dates: start: 2002
  7. LITHIUM. [Suspect]
     Active Substance: LITHIUM
     Indication: MENTAL DISORDER
     Dosage: UNK, UNKNOWN
     Route: 065
     Dates: start: 2002
  8. RISPERDAL [Suspect]
     Active Substance: RISPERIDONE
     Dosage: 1 MG, QD
     Route: 065
     Dates: start: 20070522, end: 20080109
  9. KLONOPIN [Suspect]
     Active Substance: CLONAZEPAM
     Indication: ANXIETY
     Dosage: 0.5 MG, BID
     Route: 065
     Dates: start: 20050308, end: 20100319
  10. KLONOPIN [Suspect]
     Active Substance: CLONAZEPAM
     Dosage: 0.5 MG, TID
     Route: 065
     Dates: start: 20100319, end: 20110608
  11. BUSPAR [Suspect]
     Active Substance: BUSPIRONE HYDROCHLORIDE
     Indication: MENTAL DISORDER
     Dosage: UNK, UNKNOWN
     Route: 065
  12. GEODON [Suspect]
     Active Substance: ZIPRASIDONE HYDROCHLORIDE\ZIPRASIDONE MESYLATE
     Indication: MENTAL DISORDER
     Dosage: UNK, UNKNOWN
     Route: 065
  13. SIMVASTATIN. [Concomitant]
     Active Substance: SIMVASTATIN
     Indication: BLOOD CHOLESTEROL INCREASED
     Dosage: UNK, UNKNOWN
     Route: 065
  14. VITAMINE C [Concomitant]
     Active Substance: ASCORBIC ACID
     Indication: NUTRITIONAL SUPPLEMENTATION
     Dosage: 1000 MG, QD
     Route: 065
  15. ATENOLOL. [Concomitant]
     Active Substance: ATENOLOL
     Indication: HYPERTENSION
     Dosage: 25 MG, QD
     Route: 065
  16. RISPERDAL [Suspect]
     Active Substance: RISPERIDONE
     Indication: BIPOLAR DISORDER
     Dosage: 2 MG, OTHER
     Route: 065
     Dates: start: 20031008, end: 20070522
  17. NEURONTIN [Suspect]
     Active Substance: GABAPENTIN
     Indication: MENTAL DISORDER
     Dosage: UNK, UNKNOWN
     Route: 065
     Dates: start: 2002

REACTIONS (6)
  - Sedation [Recovered/Resolved]
  - Breast enlargement [Recovered/Resolved]
  - Somnolence [Recovered/Resolved]
  - Back injury [Recovered/Resolved]
  - Dysgraphia [Unknown]
  - Breast disorder [Unknown]
